FAERS Safety Report 24389849 (Version 1)
Quarter: 2024Q4

REPORT INFORMATION
  Report Type: Spontaneous
  Country: US (occurrence: US)
  Receive Date: 20241003
  Receipt Date: 20241003
  Transmission Date: 20250115
  Serious: No
  Sender: JOHNSON AND JOHNSON
  Company Number: US-JNJFOC-20240944552

PATIENT

DRUGS (1)
  1. REMICADE [Suspect]
     Active Substance: INFLIXIMAB
     Indication: Uveitis
     Route: 041

REACTIONS (5)
  - Product substitution issue [Unknown]
  - Urticaria [Unknown]
  - Infusion related reaction [Unknown]
  - Dyspnoea [Unknown]
  - Off label use [Unknown]
